FAERS Safety Report 11611208 (Version 1)
Quarter: 2015Q4

REPORT INFORMATION
  Report Type: Spontaneous
  Country: US (occurrence: US)
  Receive Date: 20151008
  Receipt Date: 20151008
  Transmission Date: 20160304
  Serious: No
  Sender: FDA-Public Use
  Company Number: US-BAYER-2015-439409

PATIENT
  Age: 49 Year
  Sex: Male
  Weight: 86.17 kg

DRUGS (2)
  1. ALEVE [Suspect]
     Active Substance: NAPROXEN SODIUM
     Indication: TOOTHACHE
     Dosage: 1 DF, PRN
     Route: 048
  2. ALEVE [Suspect]
     Active Substance: NAPROXEN SODIUM
     Indication: TOOTHACHE
     Dosage: 6 DF, QD
     Route: 048
     Dates: start: 20151005, end: 20151006

REACTIONS (2)
  - Product use issue [None]
  - Headache [None]

NARRATIVE: CASE EVENT DATE: 20151005
